FAERS Safety Report 22921471 (Version 2)
Quarter: 2024Q3

REPORT INFORMATION
  Report Type: Spontaneous
  Country: US (occurrence: None)
  Receive Date: 20230908
  Receipt Date: 20240906
  Transmission Date: 20241017
  Serious: No
  Sender: DOMPE FARMACEUTICI
  Company Number: US-FARMAPROD-202306-1927

PATIENT
  Age: 72 Year
  Sex: Female

DRUGS (10)
  1. OXERVATE [Suspect]
     Active Substance: CENEGERMIN-BKBJ
     Indication: Neurotrophic keratopathy
     Route: 047
     Dates: start: 20230620
  2. OXERVATE [Suspect]
     Active Substance: CENEGERMIN-BKBJ
  3. OXERVATE [Suspect]
     Active Substance: CENEGERMIN-BKBJ
  4. ARTIFICIAL TEARS [Concomitant]
  5. PREDNISONE [Concomitant]
     Active Substance: PREDNISONE
  6. SYNTHROID [Concomitant]
     Active Substance: LEVOTHYROXINE SODIUM
  7. XIIDRA [Concomitant]
     Active Substance: LIFITEGRAST
  8. XANAX [Concomitant]
     Active Substance: ALPRAZOLAM
  9. ZETIA [Concomitant]
     Active Substance: EZETIMIBE
  10. PRAVASTATIN SODIUM [Concomitant]
     Active Substance: PRAVASTATIN SODIUM

REACTIONS (6)
  - Inappropriate schedule of product administration [Unknown]
  - Product administration error [Unknown]
  - Ocular discomfort [Unknown]
  - Wrong technique in product usage process [Unknown]
  - Ocular hyperaemia [Unknown]
  - Eye pain [Unknown]

NARRATIVE: CASE EVENT DATE: 20230620
